FAERS Safety Report 15958278 (Version 1)
Quarter: 2019Q1

REPORT INFORMATION
  Report Type: Spontaneous
  Country: FR (occurrence: FR)
  Receive Date: 20190213
  Receipt Date: 20190213
  Transmission Date: 20190417
  Serious: Yes (Hospitalization)
  Sender: FDA-Public Use
  Company Number: FR-PFIZER INC-2019059063

PATIENT
  Age: 4 Year
  Sex: Female
  Weight: 17 kg

DRUGS (1)
  1. ADVILMED [Suspect]
     Active Substance: IBUPROFEN
     Indication: PAIN
     Dosage: UNK
     Route: 048
     Dates: start: 20190106, end: 20190106

REACTIONS (3)
  - Wheezing [Recovered/Resolved]
  - Product use issue [Unknown]
  - Angioedema [Recovering/Resolving]

NARRATIVE: CASE EVENT DATE: 20190106
